FAERS Safety Report 21734440 (Version 3)
Quarter: 2023Q2

REPORT INFORMATION
  Report Type: Spontaneous
  Country: US (occurrence: US)
  Receive Date: 20221215
  Receipt Date: 20230607
  Transmission Date: 20230722
  Serious: No
  Sender: FDA-Public Use
  Company Number: US-BRISTOL-MYERS SQUIBB COMPANY-2022-153574

PATIENT
  Age: 78 Year
  Sex: Female
  Weight: 59.874 kg

DRUGS (1)
  1. REVLIMID [Suspect]
     Active Substance: LENALIDOMIDE
     Indication: Plasma cell myeloma
     Route: 048
     Dates: start: 20221101, end: 20230526

REACTIONS (4)
  - COVID-19 [Recovering/Resolving]
  - Tremor [Unknown]
  - Alopecia [Unknown]
  - Skin infection [Unknown]

NARRATIVE: CASE EVENT DATE: 20221101
